FAERS Safety Report 12689501 (Version 2)
Quarter: 2018Q2

REPORT INFORMATION
  Report Type: Spontaneous
  Country: US (occurrence: US)
  Receive Date: 20160826
  Receipt Date: 20180530
  Transmission Date: 20180711
  Serious: No
  Sender: FDA-Public Use
  Company Number: US-009507513-1608USA007096

PATIENT
  Age: 62 Year
  Sex: Female

DRUGS (2)
  1. ASMANEX [Suspect]
     Active Substance: MOMETASONE FUROATE
     Indication: ASTHMA
     Dosage: 1 DF, QD
     Route: 055
     Dates: start: 201512
  2. ASMANEX [Suspect]
     Active Substance: MOMETASONE FUROATE
     Dosage: 110 MCG/ ONCE A DAY
     Route: 055

REACTIONS (8)
  - Dysphonia [Recovered/Resolved]
  - Circumstance or information capable of leading to medication error [Unknown]
  - Throat irritation [Recovered/Resolved]
  - Drug dose omission [Unknown]
  - Product container issue [Unknown]
  - Cough [Recovered/Resolved]
  - Product quality issue [Unknown]
  - Drug dose omission [Unknown]

NARRATIVE: CASE EVENT DATE: 20160729
